FAERS Safety Report 26088476 (Version 3)
Quarter: 2025Q4

REPORT INFORMATION
  Report Type: Report from Study
  Country: GB (occurrence: GB)
  Receive Date: 20251125
  Receipt Date: 20251221
  Transmission Date: 20260118
  Serious: Yes (Other)
  Sender: ABBVIE
  Company Number: GB-ABBVIE-6561720

PATIENT
  Age: 53 Year
  Sex: Male

DRUGS (1)
  1. SKYRIZI [Suspect]
     Active Substance: RISANKIZUMAB-RZAA
     Indication: Psoriasis
     Dosage: 150MG/1ML?DOSE FORM: SOLUTION FOR INJECTION IN PRE-FILLED PEN
     Route: 058

REACTIONS (3)
  - Limb operation [Recovering/Resolving]
  - Limb injury [Recovering/Resolving]
  - Impaired healing [Recovering/Resolving]

NARRATIVE: CASE EVENT DATE: 20250101
